FAERS Safety Report 25074585 (Version 1)
Quarter: 2025Q1

REPORT INFORMATION
  Report Type: Spontaneous
  Country: US (occurrence: US)
  Receive Date: 20250313
  Receipt Date: 20250313
  Transmission Date: 20250409
  Serious: No
  Sender: PADAGIS
  Company Number: US-PADAGIS-2025PAD00277

PATIENT

DRUGS (1)
  1. EVAMIST [Suspect]
     Active Substance: ESTRADIOL
     Indication: Product used for unknown indication
     Route: 065

REACTIONS (1)
  - Application site hypersensitivity [Unknown]
